FAERS Safety Report 4467650-8 (Version None)
Quarter: 2004Q4

REPORT INFORMATION
  Report Type: 
  Country: None (occurrence: None)
  Receive Date: 20041001
  Receipt Date: 20040922
  Transmission Date: 20050328
  Serious: Yes (Other)
  Sender: FDA-Public Use
  Company Number: UKP04000359

PATIENT

DRUGS (2)
  1. ASACOL [Suspect]
     Dates: start: 19960101
  2. AZATHIOPRINE [Suspect]
     Indication: COLONIC STENOSIS
     Dates: start: 20000101

REACTIONS (5)
  - ABDOMINAL DISTENSION [None]
  - ABDOMINAL PAIN [None]
  - COLONIC STENOSIS [None]
  - FULL BLOOD COUNT ABNORMAL [None]
  - MALAISE [None]
